FAERS Safety Report 5720677-8 (Version None)
Quarter: 2008Q2

REPORT INFORMATION
  Report Type: 
  Country: None (occurrence: None)
  Receive Date: 20080424
  Receipt Date: 20080418
  Transmission Date: 20081010
  Serious: Yes (Life-Threatening, Hospitalization, Disabling, Other)
  Sender: FDA-Public Use
  Company Number: 2008SP007303

PATIENT
  Age: 59 Year
  Sex: Male
  Weight: 125.1928 kg

DRUGS (7)
  1. INTEGRILIN [Suspect]
     Indication: ANTICOAGULANT THERAPY
     Dates: start: 20080306, end: 20080307
  2. ANGIOMAX [Suspect]
     Indication: PERCUTANEOUS CORONARY INTERVENTION
     Dosage: 0.75 MG/KG; ONCE; IV;  75 MG/KG; QH; IV
     Route: 042
     Dates: start: 20080306, end: 20080306
  3. ANGIOMAX [Suspect]
     Indication: PERCUTANEOUS CORONARY INTERVENTION
     Dosage: 0.75 MG/KG; ONCE; IV;  75 MG/KG; QH; IV
     Route: 042
     Dates: start: 20080306, end: 20080306
  4. NITROGLYCERIN [Concomitant]
  5. MAALOX	  /00082501/ [Concomitant]
  6. FENTANYL [Concomitant]
  7. PLAVIX [Concomitant]

REACTIONS (2)
  - ANOXIC ENCEPHALOPATHY [None]
  - CEREBROVASCULAR ACCIDENT [None]
